FAERS Safety Report 11465861 (Version 9)
Quarter: 2016Q1

REPORT INFORMATION
  Report Type: Spontaneous
  Country: US (occurrence: US)
  Receive Date: 20150907
  Receipt Date: 20160111
  Transmission Date: 20160525
  Serious: No
  Sender: FDA-Public Use
  Company Number: US-009507513-1508USA012254

PATIENT
  Sex: Female

DRUGS (1)
  1. ETONOGESTREL IMPLANT- UNKNOWN [Suspect]
     Active Substance: ETONOGESTREL
     Indication: CONTRACEPTION
     Dosage: 1 ROD IN LEFT ARM/ 3 YEARS
     Route: 059
     Dates: start: 2012, end: 20151028

REACTIONS (3)
  - Menstruation normal [Unknown]
  - Complication associated with device [Recovered/Resolved]
  - No adverse event [Unknown]
